FAERS Safety Report 5289401-X (Version None)
Quarter: 2007Q2

REPORT INFORMATION
  Report Type: 
  Country: None (occurrence: None)
  Receive Date: 20070406
  Receipt Date: 20070323
  Transmission Date: 20071010
  Serious: Yes (Other)
  Sender: FDA-Public Use
  Company Number: PHBS2007JP05424

PATIENT
  Sex: Male

DRUGS (10)
  1. RITALIN [Suspect]
     Indication: ATTENTION DEFICIT/HYPERACTIVITY DISORDER
     Dosage: 20 MG/DAY
     Route: 048
     Dates: end: 20070101
  2. SYMMETREL [Suspect]
     Indication: ATTENTION DEFICIT/HYPERACTIVITY DISORDER
     Route: 048
     Dates: start: 20070101
  3. PARLODEL [Concomitant]
     Indication: ATTENTION DEFICIT/HYPERACTIVITY DISORDER
     Route: 048
  4. BETAMAC [Concomitant]
     Route: 065
  5. DEPAKENE [Concomitant]
     Route: 065
  6. TOLEDOMIN [Concomitant]
  7. AMOXAN [Concomitant]
  8. LEXOTAN [Concomitant]
  9. AMOBAN [Concomitant]
  10. THIAMINE HCL [Concomitant]

REACTIONS (5)
  - AMNESIA [None]
  - DEPRESSED LEVEL OF CONSCIOUSNESS [None]
  - DRUG INEFFECTIVE [None]
  - HEADACHE [None]
  - PYREXIA [None]
